FAERS Safety Report 25671407 (Version 2)
Quarter: 2025Q3

REPORT INFORMATION
  Report Type: Spontaneous
  Country: US (occurrence: US)
  Receive Date: 20250812
  Receipt Date: 20250926
  Transmission Date: 20251020
  Serious: No
  Sender: PFIZER
  Company Number: US-PFIZER INC-202500156370

PATIENT
  Age: 13 Year
  Sex: Female
  Weight: 40.82 kg

DRUGS (1)
  1. GENOTROPIN [Suspect]
     Active Substance: SOMATROPIN
     Indication: Turner^s syndrome
     Dosage: 2.0 MG, EVERY NIGHT FOR SEVEN DAYS A WEEK

REACTIONS (2)
  - Device leakage [Unknown]
  - Device issue [Unknown]
